FAERS Safety Report 10087441 (Version 1)
Quarter: 2014Q2

REPORT INFORMATION
  Report Type: Spontaneous
  Country: US (occurrence: US)
  Receive Date: 20140418
  Receipt Date: 20140418
  Transmission Date: 20141212
  Serious: Yes (Other)
  Sender: FDA-Public Use
  Company Number: US-PURDUE-USA-2014-0112867

PATIENT
  Sex: Male

DRUGS (5)
  1. OXYCODONE HYDROCHLORIDE (SIMILAR TO NDA 22-272) [Suspect]
     Indication: DRUG ABUSE
  2. COCAINE [Suspect]
     Indication: DRUG ABUSE
  3. PERCOCET                           /00867901/ [Suspect]
     Indication: DRUG ABUSE
  4. ADDERALL [Suspect]
     Indication: DRUG ABUSE
  5. BENZODIAZEPINE DERIVATIVES [Suspect]
     Indication: DRUG ABUSE

REACTIONS (2)
  - Substance abuse [Unknown]
  - Euphoric mood [Unknown]
